FAERS Safety Report 9399465 (Version 3)
Quarter: 2013Q4

REPORT INFORMATION
  Report Type: Report from Study
  Country: DE (occurrence: DE)
  Receive Date: 20130715
  Receipt Date: 20131104
  Transmission Date: 20140711
  Serious: Yes (Hospitalization)
  Sender: FDA-Public Use
  Company Number: DE-BIOGENIDEC-2013BI062092

PATIENT
  Age: 38 Year
  Sex: Female
  Weight: 64 kg

DRUGS (3)
  1. TYSABRI [Suspect]
     Indication: MULTIPLE SCLEROSIS
     Route: 042
     Dates: start: 20080117
  2. TYSABRI [Suspect]
     Indication: MULTIPLE SCLEROSIS
  3. LAMOTRIGIN [Concomitant]

REACTIONS (1)
  - Salpingo-oophoritis [Recovered/Resolved]
